FAERS Safety Report 21418616 (Version 5)
Quarter: 2023Q4

REPORT INFORMATION
  Report Type: Spontaneous
  Country: US (occurrence: US)
  Receive Date: 20221006
  Receipt Date: 20231114
  Transmission Date: 20240110
  Serious: Yes (Death, Hospitalization)
  Sender: FDA-Public Use
  Company Number: US-XERIS PHARMACEUTICALS-2022XER00346

PATIENT
  Sex: Male
  Weight: 95.692 kg

DRUGS (20)
  1. RECORLEV [Suspect]
     Active Substance: LEVOKETOCONAZOLE
     Indication: Cushing^s syndrome
     Dosage: 4 TABLETS (600 MG), 2X/DAY
     Route: 048
     Dates: start: 20220912
  2. RECORLEV [Suspect]
     Active Substance: LEVOKETOCONAZOLE
     Dosage: 4 TABLETS (600 MG), 2X/DAY
     Route: 048
  3. UNSPECIFIED INGREDIENT [Concomitant]
     Active Substance: UNSPECIFIED INGREDIENT
  4. SPIRONOLACTONE [Concomitant]
     Active Substance: SPIRONOLACTONE
     Dosage: 50 MG
  5. ISOSORBIDE [Concomitant]
     Active Substance: ISOSORBIDE
  6. CARVEDILOL [Concomitant]
     Active Substance: CARVEDILOL
  7. ONDANSETRON [Concomitant]
     Active Substance: ONDANSETRON
  8. LEVOTHYROXINE [Concomitant]
     Active Substance: LEVOTHYROXINE
  9. DEXAMETHASONE [Concomitant]
     Active Substance: DEXAMETHASONE
  10. METOCLOPRAMIDE [Concomitant]
     Active Substance: METOCLOPRAMIDE
  11. POTASSIUM [Concomitant]
     Active Substance: POTASSIUM
  12. PROMETHAZINE [Concomitant]
     Active Substance: PROMETHAZINE HYDROCHLORIDE
     Indication: Nausea
  13. HYDROCODONE [Concomitant]
     Active Substance: HYDROCODONE
  14. HYDROCORTISONE [Concomitant]
     Active Substance: HYDROCORTISONE
  15. MITOTANE [Concomitant]
     Active Substance: MITOTANE
  16. LASIX [Concomitant]
     Active Substance: FUROSEMIDE
     Indication: Fluid retention
  17. ASPIRIN [Concomitant]
     Active Substance: ASPIRIN
  18. HYDROXYZINE [Concomitant]
     Active Substance: HYDROXYZINE HYDROCHLORIDE
  19. PANTOPRAZOLE [Concomitant]
     Active Substance: PANTOPRAZOLE
  20. ENTRESTO [Concomitant]
     Active Substance: SACUBITRIL\VALSARTAN

REACTIONS (6)
  - Death [Fatal]
  - Cardiac failure congestive [Unknown]
  - Hospitalisation [Recovered/Resolved]
  - Blood pressure increased [Recovered/Resolved]
  - Blood glucose decreased [Recovered/Resolved]
  - Blood potassium decreased [Recovered/Resolved]

NARRATIVE: CASE EVENT DATE: 20230101
